FAERS Safety Report 9704097 (Version 1)
Quarter: 2013Q4

REPORT INFORMATION
  Report Type: Spontaneous
  Country: US (occurrence: US)
  Receive Date: 20131122
  Receipt Date: 20131122
  Transmission Date: 20140711
  Serious: No
  Sender: FDA-Public Use
  Company Number: US-GLAXOSMITHKLINE-A0998192A

PATIENT
  Age: 36 Year
  Sex: Female
  Weight: 72.7 kg

DRUGS (4)
  1. BUPROPION SR [Suspect]
     Indication: DEPRESSION
     Dosage: 150MG IN THE MORNING
     Route: 048
  2. PRENATAL VITAMINS [Concomitant]
  3. OMEGA 3 [Concomitant]
  4. VITAMIN D [Concomitant]

REACTIONS (2)
  - Exposure during pregnancy [Unknown]
  - Live birth [Unknown]
